FAERS Safety Report 5507645-6 (Version None)
Quarter: 2007Q4

REPORT INFORMATION
  Report Type: 
  Country: None (occurrence: None)
  Receive Date: 20071106
  Receipt Date: 20071024
  Transmission Date: 20080405
  Serious: Yes (Hospitalization)
  Sender: FDA-Public Use
  Company Number: JP-NOVOPROD-268888

PATIENT
  Sex: Male

DRUGS (1)
  1. NOVOLIN R [Suspect]

REACTIONS (1)
  - LIVER DISORDER [None]
